FAERS Safety Report 7218262-4 (Version None)
Quarter: 2011Q1

REPORT INFORMATION
  Report Type: 
  Country: None (occurrence: None)
  Receive Date: 20110110
  Receipt Date: 20110110
  Transmission Date: 20110831
  Serious: Yes (Hospitalization)
  Sender: FDA-Public Use
  Company Number: NZ-CEPHALON-2010006401

PATIENT
  Sex: Male
  Weight: 98 kg

DRUGS (12)
  1. CILAZAPRIL [Concomitant]
     Indication: HYPERTENSION
     Dates: start: 20090101
  2. METFORMIN [Concomitant]
     Indication: DIABETES MELLITUS
     Dates: start: 19990101
  3. ALLOPURINIL [Concomitant]
     Indication: GOUT
  4. TREANDA [Suspect]
     Indication: SPLENIC MARGINAL ZONE LYMPHOMA
     Route: 042
     Dates: start: 20100916, end: 20101126
  5. RITUXIMAB [Suspect]
     Indication: SPLENIC MARGINAL ZONE LYMPHOMA
     Route: 042
     Dates: start: 20100916, end: 20101125
  6. NEUPOGEN [Concomitant]
     Dates: start: 20101207, end: 20101215
  7. OMEPRAZOLE [Concomitant]
     Indication: GASTROOESOPHAGEAL REFLUX DISEASE
     Dates: start: 20040101
  8. TESTOSTERONE [Concomitant]
     Indication: HYPOGONADISM MALE
  9. ASPIRIN [Concomitant]
  10. FERROGRADUMENT [Concomitant]
     Indication: ANAEMIA
  11. VENTOLIN DS [Concomitant]
     Indication: ASTHMA
  12. BUDESONIDE AND EFORMOTEROL FUMERATE DIHYDRATE [Concomitant]
     Indication: ASTHMA

REACTIONS (1)
  - CHRONIC OBSTRUCTIVE PULMONARY DISEASE [None]
